FAERS Safety Report 17255057 (Version 1)
Quarter: 2020Q1

REPORT INFORMATION
  Report Type: Spontaneous
  Country: BG (occurrence: BG)
  Receive Date: 20200109
  Receipt Date: 20200109
  Transmission Date: 20200409
  Serious: Yes (Hospitalization)
  Sender: FDA-Public Use
  Company Number: BG-ELI_LILLY_AND_COMPANY-BG202001002318

PATIENT
  Age: 32 Year
  Sex: Male

DRUGS (1)
  1. ZYPADHERA [Suspect]
     Active Substance: OLANZAPINE PAMOATE
     Indication: PRODUCT USED FOR UNKNOWN INDICATION
     Dosage: 300 MG, MONTHLY (1/M)
     Route: 030

REACTIONS (10)
  - Hyperhidrosis [Unknown]
  - Pyrexia [Unknown]
  - Post-injection delirium sedation syndrome [Unknown]
  - Anxiety [Unknown]
  - Feeling abnormal [Unknown]
  - Disorientation [Unknown]
  - Movement disorder [Unknown]
  - Speech disorder [Unknown]
  - Erythema [Unknown]
  - Hypertension [Unknown]

NARRATIVE: CASE EVENT DATE: 2016
